FAERS Safety Report 5618704-1 (Version None)
Quarter: 2008Q1

REPORT INFORMATION
  Report Type: 
  Country: None (occurrence: None)
  Receive Date: 20080205
  Receipt Date: 20080129
  Transmission Date: 20080703
  Serious: Yes (Life-Threatening, Hospitalization)
  Sender: FDA-Public Use
  Company Number: E2020-02105-CLI-US

PATIENT
  Age: 77 Year
  Sex: Female
  Weight: 66.2 kg

DRUGS (3)
  1. DONEPEZIL HCL [Suspect]
     Indication: DEMENTIA ALZHEIMER'S TYPE
     Dosage: DOUBLE-BLIND, 1 IN 1 D, ORAL
     Route: 048
     Dates: start: 20071022, end: 20080109
  2. MEMANTINE HCL [Concomitant]
  3. ASPIRIN [Concomitant]

REACTIONS (9)
  - BEDRIDDEN [None]
  - CONTUSION [None]
  - DEEP VEIN THROMBOSIS [None]
  - ERYTHEMA [None]
  - FALL [None]
  - JOINT SPRAIN [None]
  - LETHARGY [None]
  - OEDEMA PERIPHERAL [None]
  - PULMONARY EMBOLISM [None]
